FAERS Safety Report 5787600-1 (Version None)
Quarter: 2008Q2

REPORT INFORMATION
  Report Type: 
  Country: None (occurrence: None)
  Receive Date: 20080625
  Receipt Date: 20080620
  Transmission Date: 20081010
  Serious: Yes (Death, Life-Threatening, Hospitalization, Disabling)
  Sender: FDA-Public Use
  Company Number: JP-MERCK-0805USA01396

PATIENT
  Age: 75 Year
  Sex: Female
  Weight: 42 kg

DRUGS (11)
  1. PRIMAXIN [Suspect]
     Indication: PNEUMONIA
     Route: 042
     Dates: start: 20080504
  2. PRIMAXIN [Suspect]
     Route: 042
     Dates: start: 20080419, end: 20080425
  3. OMEPRAL [Suspect]
     Indication: PROPHYLAXIS AGAINST GASTROINTESTINAL ULCER
     Route: 042
     Dates: start: 20080421, end: 20080504
  4. GASMOTIN [Suspect]
     Indication: DYSPEPSIA
     Route: 048
     Dates: start: 20080421, end: 20080502
  5. ISCOTIN [Suspect]
     Indication: ANTIBIOTIC PROPHYLAXIS
     Route: 048
     Dates: start: 20080423, end: 20080502
  6. FOSAMAX [Concomitant]
     Indication: OSTEOPOROSIS PROPHYLAXIS
     Route: 048
     Dates: start: 20080421, end: 20080502
  7. PREDONINE [Concomitant]
     Indication: GLOMERULONEPHRITIS RAPIDLY PROGRESSIVE
     Route: 048
     Dates: start: 20080421, end: 20080501
  8. ACINON [Concomitant]
     Indication: DYSPEPSIA
     Route: 048
     Dates: start: 20080421, end: 20080502
  9. COZAAR [Concomitant]
     Indication: CARDIAC FAILURE
     Route: 048
     Dates: start: 20071212, end: 20080502
  10. COZAAR [Concomitant]
     Indication: RENAL FAILURE
     Route: 048
     Dates: start: 20071212, end: 20080502
  11. ASPIRIN [Concomitant]
     Indication: MYOCARDIAL INFARCTION
     Route: 048
     Dates: start: 20070921, end: 20080419

REACTIONS (4)
  - ACUTE HEPATIC FAILURE [None]
  - DISSEMINATED INTRAVASCULAR COAGULATION [None]
  - RENAL FAILURE [None]
  - RESPIRATORY FAILURE [None]
